FAERS Safety Report 5709797-1 (Version None)
Quarter: 2008Q2

REPORT INFORMATION
  Report Type: 
  Country: None (occurrence: None)
  Receive Date: 20080418
  Receipt Date: 20080409
  Transmission Date: 20081010
  Serious: Yes (Other)
  Sender: FDA-Public Use
  Company Number: CA-JNJFOC-20080403063

PATIENT
  Age: 2 Year
  Sex: Female
  Weight: 14.06 kg

DRUGS (4)
  1. TYLENOL (CAPLET) [Suspect]
     Route: 050
  2. TYLENOL (CAPLET) [Suspect]
     Indication: DRUG USE FOR UNKNOWN INDICATION
     Route: 050
  3. CODEINE SUL TAB [Concomitant]
     Indication: PAIN
  4. GABAPENTIN [Concomitant]
     Indication: CONVULSION

REACTIONS (1)
  - FEEDING TUBE COMPLICATION [None]
